FAERS Safety Report 8857539 (Version 2)
Quarter: 2012Q4

REPORT INFORMATION
  Report Type: 
  Country: FR (occurrence: FR)
  Receive Date: 20121024
  Receipt Date: 20121106
  Transmission Date: 20130627
  Serious: Yes (Other)
  Sender: FDA-Public Use
  Company Number: FR-GLAXOSMITHKLINE-B0838225A

PATIENT
  Age: 8 Year
  Sex: Female

DRUGS (3)
  1. LAMICTAL [Suspect]
     Indication: EPILEPSY
     Route: 048
  2. SILYBUM MARIANUM SEED [Suspect]
     Indication: AUTISM
     Dosage: 2UNIT Per day
     Route: 048
     Dates: start: 20120426, end: 20120715
  3. FLAGYL [Concomitant]
     Dosage: 2UNIT Per day
     Route: 048
     Dates: start: 20120426

REACTIONS (6)
  - Petit mal epilepsy [Recovered/Resolved]
  - Enuresis [Recovered/Resolved]
  - Abnormal behaviour [Recovered/Resolved]
  - Drug interaction [Unknown]
  - Drug ineffective [Recovered/Resolved]
  - Disease recurrence [None]
